FAERS Safety Report 20379421 (Version 1)
Quarter: 2022Q1

REPORT INFORMATION
  Report Type: Spontaneous
  Country: US (occurrence: None)
  Receive Date: 20220126
  Receipt Date: 20220126
  Transmission Date: 20220423
  Serious: Yes (Other)
  Sender: FDA-Public Use
  Company Number: None

PATIENT
  Age: 56 Year
  Sex: Female

DRUGS (1)
  1. TROPICAMIDE [Suspect]
     Active Substance: TROPICAMIDE
     Indication: Mydriasis
     Route: 047
     Dates: start: 20220121, end: 20220121

REACTIONS (5)
  - Nausea [None]
  - Dizziness [None]
  - Vomiting [None]
  - Dysstasia [None]
  - Anxiety [None]

NARRATIVE: CASE EVENT DATE: 20220121
